FAERS Safety Report 18180077 (Version 2)
Quarter: 2020Q3

REPORT INFORMATION
  Report Type: Spontaneous
  Country: US (occurrence: US)
  Receive Date: 20200821
  Receipt Date: 20200915
  Transmission Date: 20201103
  Serious: Yes (Death, Other)
  Sender: FDA-Public Use
  Company Number: US-PFIZER INC-2020323316

PATIENT
  Age: 73 Year
  Sex: Female
  Weight: 51.4 kg

DRUGS (1)
  1. VFEND [Suspect]
     Active Substance: VORICONAZOLE
     Dosage: 200 MG, 2X/DAY
     Route: 048

REACTIONS (4)
  - Upper limb fracture [Fatal]
  - Hip fracture [Fatal]
  - Hyperkalaemia [Fatal]
  - Cardiac arrest [Fatal]
